FAERS Safety Report 7660489-1 (Version None)
Quarter: 2011Q3

REPORT INFORMATION
  Report Type: 
  Country: None (occurrence: None)
  Receive Date: 20110805
  Receipt Date: 20110727
  Transmission Date: 20111222
  Serious: Yes (Other)
  Sender: FDA-Public Use
  Company Number: US-ASTRAZENECA-2011SE39613

PATIENT
  Age: 36 Year
  Sex: Female

DRUGS (4)
  1. SEROQUEL XR [Suspect]
     Indication: SLEEP DISORDER
     Route: 048
  2. SEROQUEL XR [Suspect]
     Indication: DEPRESSION
     Route: 048
  3. DEPAKOTE [Concomitant]
  4. LITHIUM CARBONATE [Concomitant]

REACTIONS (4)
  - OFF LABEL USE [None]
  - ROAD TRAFFIC ACCIDENT [None]
  - INSOMNIA [None]
  - SOMNOLENCE [None]
